FAERS Safety Report 24825764 (Version 1)
Quarter: 2025Q1

REPORT INFORMATION
  Report Type: Spontaneous
  Country: US (occurrence: US)
  Receive Date: 20250109
  Receipt Date: 20250109
  Transmission Date: 20250409
  Serious: Yes (Hospitalization, Other)
  Sender: INCYTE
  Company Number: US-INCYTE CORPORATION-2024IN013957

PATIENT

DRUGS (26)
  1. JAKAFI [Suspect]
     Active Substance: RUXOLITINIB
     Indication: Haemophagocytic lymphohistiocytosis
     Route: 065
     Dates: start: 20240522, end: 20240530
  2. JAKAFI [Suspect]
     Active Substance: RUXOLITINIB
     Route: 065
     Dates: start: 20240531, end: 20240604
  3. JAKAFI [Suspect]
     Active Substance: RUXOLITINIB
     Route: 065
     Dates: start: 20240605, end: 20240607
  4. JAKAFI [Suspect]
     Active Substance: RUXOLITINIB
     Route: 065
     Dates: start: 20240607, end: 20240902
  5. HYDROCORTISONE [Suspect]
     Active Substance: HYDROCORTISONE
     Indication: Haemophagocytic lymphohistiocytosis
     Route: 065
     Dates: start: 20240823, end: 20241216
  6. PREDNISONE [Suspect]
     Active Substance: PREDNISONE
     Indication: Haemophagocytic lymphohistiocytosis
     Dosage: 25 MILLIGRAM, QD
     Route: 065
  7. ANAKINRA [Suspect]
     Active Substance: ANAKINRA
     Indication: Haemophagocytic lymphohistiocytosis
     Route: 065
     Dates: start: 20240228, end: 20240510
  8. ANAKINRA [Suspect]
     Active Substance: ANAKINRA
     Route: 065
     Dates: start: 20240612, end: 20240703
  9. ANAKINRA [Suspect]
     Active Substance: ANAKINRA
     Route: 065
     Dates: start: 20240914, end: 20241006
  10. ANAKINRA [Suspect]
     Active Substance: ANAKINRA
     Dosage: 200 MILLIGRAM, QD
     Route: 065
     Dates: start: 20241015
  11. TOCILIZUMAB [Suspect]
     Active Substance: TOCILIZUMAB
     Indication: Haemophagocytic lymphohistiocytosis
     Route: 065
     Dates: start: 20240510
  12. TOCILIZUMAB [Suspect]
     Active Substance: TOCILIZUMAB
     Route: 065
     Dates: start: 20240706
  13. EMAPALUMAB [Suspect]
     Active Substance: EMAPALUMAB
     Indication: Haemophagocytic lymphohistiocytosis
     Route: 065
     Dates: start: 20240704, end: 20240715
  14. METHYLPREDNISOLONE [Suspect]
     Active Substance: METHYLPREDNISOLONE
     Indication: Haemophagocytic lymphohistiocytosis
     Route: 065
     Dates: start: 20240201, end: 20240310
  15. METHYLPREDNISOLONE [Suspect]
     Active Substance: METHYLPREDNISOLONE
     Route: 065
     Dates: start: 20240521, end: 20240525
  16. METHYLPREDNISOLONE [Suspect]
     Active Substance: METHYLPREDNISOLONE
     Route: 065
     Dates: start: 20240602, end: 20240605
  17. METHYLPREDNISOLONE [Suspect]
     Active Substance: METHYLPREDNISOLONE
     Route: 065
     Dates: start: 20240905, end: 20240907
  18. PREDNISOLONE [Suspect]
     Active Substance: PREDNISOLONE
     Indication: Haemophagocytic lymphohistiocytosis
     Route: 065
     Dates: start: 20240407, end: 20240430
  19. PREDNISOLONE [Suspect]
     Active Substance: PREDNISOLONE
     Route: 065
     Dates: start: 20240605, end: 20240621
  20. PREDNISOLONE [Suspect]
     Active Substance: PREDNISOLONE
     Route: 065
     Dates: start: 20240621, end: 20240628
  21. PREDNISOLONE [Suspect]
     Active Substance: PREDNISOLONE
     Route: 065
     Dates: start: 20240628, end: 20240703
  22. PREDNISOLONE [Suspect]
     Active Substance: PREDNISOLONE
     Route: 065
     Dates: start: 20241217
  23. DEXAMETHASONE [Suspect]
     Active Substance: DEXAMETHASONE
     Indication: Haemophagocytic lymphohistiocytosis
     Route: 065
     Dates: start: 20240703, end: 20240823
  24. FIDAXOMICIN [Suspect]
     Active Substance: FIDAXOMICIN
     Indication: Clostridium difficile infection
     Route: 065
  25. METHADONE [Concomitant]
     Active Substance: METHADONE HYDROCHLORIDE
     Indication: Product used for unknown indication
     Route: 065
  26. DIAZEPAM [Concomitant]
     Active Substance: DIAZEPAM
     Indication: Product used for unknown indication
     Route: 065

REACTIONS (25)
  - Haemophagocytic lymphohistiocytosis [Not Recovered/Not Resolved]
  - Respiratory failure [Unknown]
  - Weaning failure [Unknown]
  - Condition aggravated [Unknown]
  - Cytomegalovirus viraemia [Unknown]
  - Epstein-Barr viraemia [Unknown]
  - Clostridium difficile infection [Unknown]
  - Pulmonary oedema [Unknown]
  - Pneumonia aspiration [Unknown]
  - Acute kidney injury [Recovered/Resolved]
  - Dermatitis exfoliative generalised [Recovered/Resolved]
  - Adrenal insufficiency [Unknown]
  - Histoplasmosis [Unknown]
  - Drug reaction with eosinophilia and systemic symptoms [Unknown]
  - Parvovirus infection [Unknown]
  - Oral candidiasis [Unknown]
  - Superficial vein thrombosis [Unknown]
  - Proteinuria [Unknown]
  - Leukocytosis [Unknown]
  - Dysphagia [Unknown]
  - Hypernatraemia [Recovering/Resolving]
  - Hypovolaemia [Recovering/Resolving]
  - Hyperuricaemia [Unknown]
  - Hypercalcaemia [Recovering/Resolving]
  - Off label use [Unknown]

NARRATIVE: CASE EVENT DATE: 20240501
